FAERS Safety Report 14876490 (Version 1)
Quarter: 2018Q2

REPORT INFORMATION
  Report Type: Spontaneous
  Country: US (occurrence: US)
  Receive Date: 20180510
  Receipt Date: 20180510
  Transmission Date: 20180711
  Serious: No
  Sender: FDA-Public Use
  Company Number: US-TEVA-2018-US-891560

PATIENT
  Sex: Female

DRUGS (1)
  1. ADDERALL [Suspect]
     Active Substance: AMPHETAMINE ASPARTATE\AMPHETAMINE SULFATE\DEXTROAMPHETAMINE SACCHARATE\DEXTROAMPHETAMINE SULFATE
     Indication: ATTENTION DEFICIT/HYPERACTIVITY DISORDER
     Route: 065
     Dates: start: 201801

REACTIONS (7)
  - Blood pressure increased [Unknown]
  - Paranoia [Unknown]
  - Product taste abnormal [Unknown]
  - Drug ineffective [Unknown]
  - Palpitations [Unknown]
  - Product dosage form issue [Unknown]
  - Urine odour abnormal [Unknown]

NARRATIVE: CASE EVENT DATE: 201801
